FAERS Safety Report 8962667 (Version 2)
Quarter: 2013Q1

REPORT INFORMATION
  Report Type: Spontaneous
  Country: GB (occurrence: GB)
  Receive Date: 20121213
  Receipt Date: 20130110
  Transmission Date: 20140127
  Serious: Yes (Hospitalization)
  Sender: FDA-Public Use
  Company Number: GB-EISAI INC-E7389-03347-SPO-GB

PATIENT
  Age: 78 Year
  Sex: Female

DRUGS (5)
  1. HALAVEN [Suspect]
     Indication: BREAST CANCER
     Route: 041
     Dates: start: 20120102, end: 20120114
  2. IBUPROFEN [Concomitant]
     Indication: PAIN
     Route: 048
  3. MST [Concomitant]
     Indication: PAIN
     Route: 048
  4. LANSOPRAZOLE [Concomitant]
     Indication: DYSPEPSIA
     Route: 048
  5. SENNA [Concomitant]
     Indication: CONSTIPATION
     Route: 048

REACTIONS (1)
  - Pulmonary embolism [Unknown]
